FAERS Safety Report 23252270 (Version 1)
Quarter: 2023Q4

REPORT INFORMATION
  Report Type: Report from Study
  Country: US (occurrence: None)
  Receive Date: 20231201
  Receipt Date: 20231201
  Transmission Date: 20240110
  Serious: Yes (Other)
  Sender: FDA-Public Use
  Company Number: 2023A269436

PATIENT
  Sex: Male

DRUGS (2)
  1. SYMBICORT [Suspect]
     Active Substance: BUDESONIDE\FORMOTEROL FUMARATE DIHYDRATE
     Dosage: UNKNOWN UNKNOWN
     Route: 055
  2. DALIRESP [Suspect]
     Active Substance: ROFLUMILAST
     Dosage: UNKNOWN
     Route: 048

REACTIONS (2)
  - Cardiac disorder [Unknown]
  - Insomnia [Unknown]
